FAERS Safety Report 20899823 (Version 1)
Quarter: 2022Q2

REPORT INFORMATION
  Report Type: Spontaneous
  Country: JP (occurrence: JP)
  Receive Date: 20220601
  Receipt Date: 20220601
  Transmission Date: 20220721
  Serious: Yes (Hospitalization, Other)
  Sender: FDA-Public Use
  Company Number: JP-MSD-M2022-11839

PATIENT
  Age: 76 Year
  Sex: Male

DRUGS (1)
  1. KEYTRUDA [Suspect]
     Active Substance: PEMBROLIZUMAB
     Indication: Head and neck cancer
     Dosage: 200 MILLIGRAM, Q3W
     Route: 041
     Dates: start: 20220216, end: 2022

REACTIONS (4)
  - Duodenal perforation [Unknown]
  - Diarrhoea [Recovering/Resolving]
  - Gastroenteritis radiation [Not Recovered/Not Resolved]
  - Haematuria [Unknown]

NARRATIVE: CASE EVENT DATE: 20220220
